FAERS Safety Report 23466018 (Version 2)
Quarter: 2024Q1

REPORT INFORMATION
  Report Type: Spontaneous
  Country: US (occurrence: US)
  Receive Date: 20240201
  Receipt Date: 20240301
  Transmission Date: 20240410
  Serious: No
  Sender: FDA-Public Use
  Company Number: US-BRISTOL-MYERS SQUIBB COMPANY-2024-016233

PATIENT
  Age: 57 Year
  Sex: Female

DRUGS (3)
  1. REVLIMID [Suspect]
     Active Substance: LENALIDOMIDE
     Indication: Plasma cell myeloma
  2. REVLIMID [Suspect]
     Active Substance: LENALIDOMIDE
     Indication: Monoclonal gammopathy
     Route: 048
  3. REVLIMID [Suspect]
     Active Substance: LENALIDOMIDE
     Route: 048

REACTIONS (2)
  - Rash [Unknown]
  - Neutrophil count decreased [Not Recovered/Not Resolved]
